FAERS Safety Report 25641606 (Version 1)
Quarter: 2025Q3

REPORT INFORMATION
  Report Type: Spontaneous
  Country: US (occurrence: US)
  Receive Date: 20250804
  Receipt Date: 20250804
  Transmission Date: 20251020
  Serious: No
  Sender: ELI LILLY AND COMPANY
  Company Number: US-ELI_LILLY_AND_COMPANY-US202507030376

PATIENT
  Age: 59 Year
  Sex: Male

DRUGS (2)
  1. HUMALOG [Suspect]
     Active Substance: INSULIN LISPRO
     Indication: Type 3 diabetes mellitus
     Route: 065
  2. HUMALOG [Suspect]
     Active Substance: INSULIN LISPRO
     Route: 065

REACTIONS (7)
  - Ulcer [Unknown]
  - Expired product administered [Unknown]
  - Pain [Unknown]
  - Gait disturbance [Unknown]
  - Neuropathy peripheral [Unknown]
  - Feeling abnormal [Unknown]
  - Visual impairment [Unknown]
